FAERS Safety Report 5042938-0 (Version None)
Quarter: 2006Q3

REPORT INFORMATION
  Report Type: 
  Country: None (occurrence: None)
  Receive Date: 20060705
  Receipt Date: 20060621
  Transmission Date: 20061208
  Serious: Yes (Hospitalization)
  Sender: FDA-Public Use
  Company Number: AT-JNJFOC-20060306864

PATIENT
  Sex: Female
  Weight: 62.7 kg

DRUGS (3)
  1. REMICADE [Suspect]
     Indication: PSORIATIC ARTHROPATHY
     Route: 042
  2. REMICADE [Suspect]
     Indication: PSORIASIS
     Route: 042
  3. NEODOLPASSE [Concomitant]
     Indication: ARTHRALGIA
     Route: 042

REACTIONS (26)
  - ABASIA [None]
  - ALANINE AMINOTRANSFERASE INCREASED [None]
  - ANTINUCLEAR ANTIBODY POSITIVE [None]
  - ARTHRITIS [None]
  - ASPARTATE AMINOTRANSFERASE INCREASED [None]
  - BLOOD ALKALINE PHOSPHATASE INCREASED [None]
  - CHILLS [None]
  - DRUG HYPERSENSITIVITY [None]
  - DYSPHAGIA [None]
  - FIBROSIS [None]
  - GAMMA-GLUTAMYLTRANSFERASE INCREASED [None]
  - GENERAL PHYSICAL HEALTH DETERIORATION [None]
  - HEPATIC ENZYME INCREASED [None]
  - IMPAIRED WORK ABILITY [None]
  - INFECTION [None]
  - LUPUS-LIKE SYNDROME [None]
  - MALAISE [None]
  - MUSCULOSKELETAL STIFFNESS [None]
  - OEDEMA PERIPHERAL [None]
  - PHARYNGOESOPHAGEAL DIVERTICULUM [None]
  - PHARYNGOLARYNGEAL PAIN [None]
  - RED BLOOD CELL SEDIMENTATION RATE INCREASED [None]
  - SENSATION OF FOREIGN BODY [None]
  - SKIN DISORDER [None]
  - SPINAL OSTEOARTHRITIS [None]
  - STIFF-MAN SYNDROME [None]
